FAERS Safety Report 6551059-7 (Version None)
Quarter: 2010Q1

REPORT INFORMATION
  Report Type: 
  Country: None (occurrence: None)
  Receive Date: 20100122
  Receipt Date: 20100122
  Transmission Date: 20100710
  Serious: Yes (Other)
  Sender: FDA-Public Use
  Company Number: None

PATIENT
  Sex: Female
  Weight: 78.0187 kg

DRUGS (2)
  1. BUTORPHANOL TARTRATE [Suspect]
     Indication: BACK PAIN
     Dosage: 1 MG X1 IV
     Route: 042
     Dates: start: 20100119, end: 20100119
  2. ONDANSETRON [Suspect]

REACTIONS (8)
  - ANXIETY [None]
  - BODY TEMPERATURE DECREASED [None]
  - COLD SWEAT [None]
  - DISCOMFORT [None]
  - HYPERHIDROSIS [None]
  - NAUSEA [None]
  - PALLOR [None]
  - VOMITING [None]
